FAERS Safety Report 6143580-0 (Version None)
Quarter: 2009Q2

REPORT INFORMATION
  Report Type: 
  Country: None (occurrence: None)
  Receive Date: 20090403
  Receipt Date: 20090323
  Transmission Date: 20091009
  Serious: Yes (Hospitalization)
  Sender: FDA-Public Use
  Company Number: US-BAXTER-2009BH004720

PATIENT
  Age: 66 Year
  Sex: Male

DRUGS (6)
  1. DIANEAL [Suspect]
     Indication: PERITONEAL DIALYSIS
     Route: 033
     Dates: start: 20090324
  2. DIANEAL [Suspect]
     Route: 033
     Dates: start: 20080901, end: 20090301
  3. DIANEAL [Suspect]
     Route: 033
     Dates: start: 20080901, end: 20080901
  4. DIANEAL [Suspect]
     Route: 033
     Dates: start: 20080901, end: 20080901
  5. DIANEAL [Suspect]
     Route: 033
     Dates: start: 20080901, end: 20080901
  6. INSULIN [Concomitant]
     Indication: DIABETES MELLITUS
     Route: 065

REACTIONS (1)
  - CORONARY ARTERY DISEASE [None]
